FAERS Safety Report 15521569 (Version 1)
Quarter: 2018Q4

REPORT INFORMATION
  Report Type: Report from Study
  Country: US (occurrence: US)
  Receive Date: 20181017
  Receipt Date: 20181017
  Transmission Date: 20190205
  Serious: No
  Sender: FDA-Public Use
  Company Number: US-AMGEN-USASL2018123818

PATIENT
  Age: 74 Year
  Sex: Male

DRUGS (1)
  1. REPATHA [Suspect]
     Active Substance: EVOLOCUMAB
     Indication: TYPE V HYPERLIPIDAEMIA
     Dosage: UNK (12 WEEK SUPPLY)
     Route: 065

REACTIONS (5)
  - Myalgia [Unknown]
  - Heart rate increased [Unknown]
  - Arthralgia [Unknown]
  - Dyspnoea [Unknown]
  - Oropharyngeal pain [Unknown]
